FAERS Safety Report 4376773-3 (Version None)
Quarter: 2004Q2

REPORT INFORMATION
  Report Type: 
  Country: None (occurrence: None)
  Receive Date: 20040609
  Receipt Date: 20040303
  Transmission Date: 20050107
  Serious: Yes (Other)
  Sender: FDA-Public Use
  Company Number: 2003189456US

PATIENT
  Age: 76 Year
  Sex: Female

DRUGS (3)
  1. BEXTRA [Suspect]
     Indication: ARTHRALGIA
     Dosage: 10 MG, QD
     Dates: start: 20031112, end: 20031125
  2. TOPROL-XL [Concomitant]
  3. ASPIRIN [Concomitant]

REACTIONS (2)
  - COLITIS [None]
  - GASTROINTESTINAL HAEMORRHAGE [None]
